FAERS Safety Report 23069321 (Version 1)
Quarter: 2023Q4

REPORT INFORMATION
  Report Type: Report from Study
  Country: CA (occurrence: CA)
  Receive Date: 20231016
  Receipt Date: 20231016
  Transmission Date: 20240110
  Serious: Yes (Other)
  Sender: FDA-Public Use
  Company Number: CA-JNJFOC-20231030369

PATIENT
  Age: 4 Decade
  Sex: Female
  Weight: 47 kg

DRUGS (3)
  1. REMICADE [Suspect]
     Active Substance: INFLIXIMAB
     Indication: Crohn^s disease
     Route: 042
  2. MONOFERRIC [Suspect]
     Active Substance: FERRIC DERISOMALTOSE
     Indication: Product used for unknown indication
     Dosage: THERAPY START DATE /SEP/2023
     Route: 065
     Dates: end: 202309
  3. VENFER Z [Concomitant]
     Indication: Product used for unknown indication
     Route: 065
     Dates: start: 2021

REACTIONS (4)
  - Mineral supplementation [Unknown]
  - Influenza [Recovered/Resolved]
  - Infusion related reaction [Unknown]
  - Anxiety [Unknown]

NARRATIVE: CASE EVENT DATE: 20210101
